FAERS Safety Report 9239648 (Version 1)
Quarter: 2013Q2

REPORT INFORMATION
  Report Type: Spontaneous
  Country: US (occurrence: US)
  Receive Date: 20130418
  Receipt Date: 20130418
  Transmission Date: 20140414
  Serious: Yes (Hospitalization)
  Sender: FDA-Public Use
  Company Number: US-ASTRAZENECA-2013SE24475

PATIENT
  Age: 60 Year
  Sex: Female
  Weight: 98 kg

DRUGS (13)
  1. NEXIUM [Suspect]
     Indication: GASTROOESOPHAGEAL REFLUX DISEASE
     Route: 048
     Dates: start: 2003, end: 2006
  2. NEXIUM [Suspect]
     Indication: GASTROOESOPHAGEAL REFLUX DISEASE
     Route: 048
     Dates: start: 2006
  3. PRILOSEC [Suspect]
     Indication: GASTROOESOPHAGEAL REFLUX DISEASE
     Route: 048
  4. LASARTAN [Concomitant]
     Route: 048
  5. LASIX [Concomitant]
     Route: 048
  6. BABY ASPIRIN [Concomitant]
     Route: 048
  7. ADVAIR [Concomitant]
     Indication: ASTHMA
     Dosage: 230/21
     Route: 055
  8. GABAPENTIN [Concomitant]
     Route: 048
  9. SIMVUSTATIN [Concomitant]
     Route: 048
  10. FLEXERIL [Concomitant]
     Route: 048
  11. HYCOSOMINE [Concomitant]
     Indication: IRRITABLE BOWEL SYNDROME
     Dosage: PRN
     Route: 048
  12. CYMBALTA [Concomitant]
     Route: 048
  13. NASONEX [Concomitant]
     Route: 045

REACTIONS (12)
  - Cardiac failure congestive [Unknown]
  - Myocardial infarction [Unknown]
  - Aspiration [Unknown]
  - Oesophageal spasm [Unknown]
  - Irritable bowel syndrome [Unknown]
  - Sleep disorder due to general medical condition, insomnia type [Unknown]
  - Asthma [Unknown]
  - Gastrooesophageal reflux disease [Unknown]
  - Dyspepsia [Unknown]
  - Drug dose omission [Unknown]
  - Off label use [Unknown]
  - Drug ineffective [Unknown]
